FAERS Safety Report 24582565 (Version 1)
Quarter: 2024Q4

REPORT INFORMATION
  Report Type: Spontaneous
  Country: US (occurrence: US)
  Receive Date: 20241106
  Receipt Date: 20241106
  Transmission Date: 20250114
  Serious: Yes (Other)
  Sender: Haleon PLC
  Company Number: US-HALEON-2205929

PATIENT

DRUGS (5)
  1. ADVIL [Suspect]
     Active Substance: IBUPROFEN
     Indication: Product used for unknown indication
     Route: 065
     Dates: start: 20241016
  2. SPIKEVAX [Suspect]
     Active Substance: CX-046684
     Indication: COVID-19
     Dosage: EXPDATE:20250520 FREQUENCY: 3
     Dates: start: 20240911
  3. BENADRYL [Suspect]
     Active Substance: DIPHENHYDRAMINE HYDROCHLORIDE
     Indication: Pruritus
     Dates: start: 20241016
  4. BENADRYL [Suspect]
     Active Substance: DIPHENHYDRAMINE HYDROCHLORIDE
     Indication: Urticaria
  5. DIOVAN [Concomitant]
     Active Substance: VALSARTAN
     Indication: Product used for unknown indication

REACTIONS (16)
  - Cerebrovascular accident [Recovering/Resolving]
  - Neck mass [Recovering/Resolving]
  - Sneezing [Recovering/Resolving]
  - Gallbladder disorder [Recovering/Resolving]
  - Respiratory syncytial virus infection [Recovering/Resolving]
  - Dyspnoea [Recovering/Resolving]
  - Dysphonia [Recovering/Resolving]
  - Thyroid mass [Recovering/Resolving]
  - Cough [Recovering/Resolving]
  - Restless legs syndrome [Recovering/Resolving]
  - Swelling face [Recovering/Resolving]
  - Malaise [Unknown]
  - Pain [Recovering/Resolving]
  - Nightmare [Recovering/Resolving]
  - Oropharyngeal pain [Unknown]
  - Fatigue [Recovering/Resolving]
